FAERS Safety Report 9565879 (Version 1)
Quarter: 2013Q3

REPORT INFORMATION
  Report Type: Spontaneous
  Country: FR (occurrence: FR)
  Receive Date: 20130930
  Receipt Date: 20130930
  Transmission Date: 20140515
  Serious: Yes (Hospitalization)
  Sender: FDA-Public Use
  Company Number: PHHY2013FR107349

PATIENT
  Age: 60 Year
  Sex: Male

DRUGS (7)
  1. TEGRETOL [Suspect]
     Dosage: UNK UKN, UNK
     Route: 048
     Dates: start: 1995
  2. OMEPRAZOLE SANDOZ [Suspect]
     Dosage: UNK UKN, UNK
     Route: 048
     Dates: start: 2004
  3. KEPPRA [Suspect]
     Dosage: UNK UKN, UNK
     Route: 048
     Dates: start: 2002
  4. RIVOTRIL [Suspect]
     Dosage: UNK UKN, UNK
     Dates: start: 2010
  5. MESTINON [Suspect]
     Dosage: UNK UKN, UNK
     Dates: start: 2010
  6. CRESTOR [Suspect]
     Dosage: UNK UKN, UNK
     Route: 048
     Dates: start: 201304
  7. UROREC [Suspect]
     Dosage: UNK UKN, UNK
     Route: 048
     Dates: start: 201205

REACTIONS (3)
  - Toxic skin eruption [Unknown]
  - Rash [Unknown]
  - Eczema [Unknown]
